FAERS Safety Report 8264773-2 (Version None)
Quarter: 2012Q2

REPORT INFORMATION
  Report Type: 
  Country: None (occurrence: None)
  Receive Date: 20120406
  Receipt Date: 20120330
  Transmission Date: 20120825
  Serious: Yes (Other)
  Sender: FDA-Public Use
  Company Number: FR-BRISTOL-MYERS SQUIBB COMPANY-16429276

PATIENT
  Age: 51 Year
  Sex: Male

DRUGS (3)
  1. NORVIR [Suspect]
     Dates: start: 20071101
  2. ABACAVIR SULFATE/LAMIVUDINE [Suspect]
  3. REYATAZ [Suspect]
     Indication: HIV INFECTION
     Route: 048
     Dates: start: 20071101, end: 20120213

REACTIONS (3)
  - RENAL COLIC [None]
  - HYPERCHOLESTEROLAEMIA [None]
  - NEPHROLITHIASIS [None]
